FAERS Safety Report 21269474 (Version 1)
Quarter: 2022Q3

REPORT INFORMATION
  Report Type: Spontaneous
  Country: US (occurrence: None)
  Receive Date: 20220829
  Receipt Date: 20220829
  Transmission Date: 20221027
  Serious: Yes (Life-Threatening)
  Sender: FDA-Public Use
  Company Number: None

PATIENT
  Age: 65 Year
  Sex: Female
  Weight: 53.1 kg

DRUGS (2)
  1. CIPRO [Suspect]
     Active Substance: CIPROFLOXACIN HYDROCHLORIDE
  2. LEVAQUIN [Suspect]
     Active Substance: LEVOFLOXACIN

REACTIONS (1)
  - Aortic aneurysm [None]

NARRATIVE: CASE EVENT DATE: 20060101
